FAERS Safety Report 4302127-1 (Version None)
Quarter: 2004Q1

REPORT INFORMATION
  Report Type: 
  Country: None (occurrence: None)
  Receive Date: 20040202
  Receipt Date: 20040209
  Transmission Date: 20041129
  Serious: Yes (Hospitalization)
  Sender: FDA-Public Use
  Company Number: FR-JNJFOC-20031201871

PATIENT
  Age: 12 Year
  Sex: Male
  Weight: 39 kg

DRUGS (2)
  1. HALDOL [Suspect]
     Indication: ABNORMAL BEHAVIOUR
     Dosage: 15 DOSE(S), 2 IN 1 DAY, ORAL
     Route: 048
     Dates: start: 19950101
  2. URBANYL (CLOBAZAM) [Concomitant]

REACTIONS (7)
  - DRUG TOLERANCE DECREASED [None]
  - FEMORAL NECK FRACTURE [None]
  - FOOT FRACTURE [None]
  - OSTEOPOROSIS [None]
  - SCAPULA FRACTURE [None]
  - SPINAL COMPRESSION FRACTURE [None]
  - TIBIA FRACTURE [None]
